FAERS Safety Report 24116174 (Version 2)
Quarter: 2024Q4

REPORT INFORMATION
  Report Type: Spontaneous
  Country: JP (occurrence: JP)
  Receive Date: 20240722
  Receipt Date: 20241017
  Transmission Date: 20250114
  Serious: Yes (Death, Other)
  Sender: MERCK
  Company Number: JP-MSD-2407JPN002838JAA

PATIENT
  Sex: Female

DRUGS (2)
  1. KEYTRUDA [Suspect]
     Active Substance: PEMBROLIZUMAB
     Indication: Uterine cancer
     Dosage: UNK
     Route: 041
     Dates: start: 202406, end: 2024
  2. LENVATINIB MESYLATE [Suspect]
     Active Substance: LENVATINIB MESYLATE
     Indication: Uterine cancer
     Dosage: UNK
     Route: 048
     Dates: start: 20240524, end: 2024

REACTIONS (1)
  - Malignant neoplasm progression [Fatal]

NARRATIVE: CASE EVENT DATE: 20240101
